FAERS Safety Report 6667017-8 (Version None)
Quarter: 2010Q2

REPORT INFORMATION
  Report Type: 
  Country: None (occurrence: None)
  Receive Date: 20100405
  Receipt Date: 20100325
  Transmission Date: 20101027
  Serious: Yes (Life-Threatening, Hospitalization)
  Sender: FDA-Public Use
  Company Number: US-JNJFOC-20100308495

PATIENT
  Sex: Female
  Weight: 90.72 kg

DRUGS (1)
  1. REMICADE [Suspect]
     Indication: CROHN'S DISEASE
     Route: 042

REACTIONS (9)
  - ABASIA [None]
  - CHOLECYSTECTOMY [None]
  - CIRCULATORY COLLAPSE [None]
  - DECREASED IMMUNE RESPONSIVENESS [None]
  - DIABETES MELLITUS [None]
  - MALAISE [None]
  - PNEUMONIA [None]
  - SEPSIS [None]
  - WEIGHT INCREASED [None]
